FAERS Safety Report 9382390 (Version 2)
Quarter: 2013Q3

REPORT INFORMATION
  Report Type: Spontaneous
  Country: RU (occurrence: RU)
  Receive Date: 20130703
  Receipt Date: 20130808
  Transmission Date: 20140515
  Serious: Yes (Other)
  Sender: FDA-Public Use
  Company Number: RU-BRISTOL-MYERS SQUIBB COMPANY-19042480

PATIENT
  Age: 62 Year
  Sex: Male

DRUGS (2)
  1. SPRYCEL (CML) TABS 70 MG [Suspect]
     Indication: CHRONIC MYELOID LEUKAEMIA
     Route: 048
     Dates: start: 2008
  2. HYDROXYCARBAMIDE [Concomitant]

REACTIONS (1)
  - Glomerulonephritis chronic [Not Recovered/Not Resolved]
